FAERS Safety Report 9447935 (Version 1)
Quarter: 2013Q3

REPORT INFORMATION
  Report Type: Report from Study
  Country: US (occurrence: US)
  Receive Date: 20130808
  Receipt Date: 20130808
  Transmission Date: 20140515
  Serious: Yes (Other)
  Sender: FDA-Public Use
  Company Number: PHHY2013US084226

PATIENT
  Sex: Female
  Weight: 95.24 kg

DRUGS (17)
  1. GILENYA [Suspect]
     Indication: MULTIPLE SCLEROSIS
     Dosage: 0.5 MG, QD
     Route: 048
     Dates: start: 20120519, end: 20130131
  2. FIBERCON [Concomitant]
     Dosage: 625 MG, UNK
  3. BENTYL [Concomitant]
     Dosage: 20 MG, UNK
  4. NEURONTIN [Concomitant]
     Dosage: 100 MG, UNK
  5. SYNTHROID [Concomitant]
     Dosage: 112 UG, UNK
  6. NORTRIPTYLINE [Concomitant]
     Dosage: 25 MG, UNK
  7. DILTIAZEM [Concomitant]
     Dosage: 300 MG, UNK
  8. IBUPROFEN [Concomitant]
     Dosage: 200 MG, UNK
  9. SEASONIQUE [Concomitant]
  10. MULTI-VIT [Concomitant]
  11. DITROPAN [Concomitant]
     Dosage: 10 MG, UNK
  12. MIRALAX [Concomitant]
  13. PREVACID [Concomitant]
     Dosage: 30 MG, UNK
  14. HYDROCHLOROTHIAZID [Concomitant]
     Dosage: 12.5 MG, UNK
  15. MACRODANTIN [Concomitant]
     Dosage: 25 MG, UNK
  16. CARVEDILOL [Concomitant]
     Dosage: 12.5 UG, UNK
  17. ETHINYLESTRADIOL/LEVONORGESTREL A [Concomitant]
     Dosage: UNK

REACTIONS (2)
  - Haemorrhagic diathesis [Unknown]
  - Platelet count decreased [Unknown]
